FAERS Safety Report 7787605-5 (Version None)
Quarter: 2011Q3

REPORT INFORMATION
  Report Type: 
  Country: None (occurrence: None)
  Receive Date: 20110929
  Receipt Date: 20110926
  Transmission Date: 20111222
  Serious: Yes (Other)
  Sender: FDA-Public Use
  Company Number: US-BAYER-2011-091279

PATIENT
  Sex: Female

DRUGS (1)
  1. MAGNEVIST [Suspect]
     Indication: NUCLEAR MAGNETIC RESONANCE IMAGING
     Dosage: 20 ML, ONCE

REACTIONS (8)
  - TACHYCARDIA [None]
  - URTICARIA [None]
  - RASH [None]
  - FLUSHING [None]
  - PRURITUS [None]
  - BLOOD PRESSURE INCREASED [None]
  - CHEST PAIN [None]
  - ANXIETY [None]
